FAERS Safety Report 6704215-9 (Version None)
Quarter: 2010Q2

REPORT INFORMATION
  Report Type: 
  Country: None (occurrence: None)
  Receive Date: 20100430
  Receipt Date: 20100420
  Transmission Date: 20101027
  Serious: Yes (Other)
  Sender: FDA-Public Use
  Company Number: GB-WATSON-2010-05619

PATIENT
  Age: 36 Year
  Sex: Male

DRUGS (3)
  1. ETOPOSIDE [Suspect]
     Indication: TESTIS CANCER
     Dosage: UNK
  2. CISPLATIN [Suspect]
     Indication: TESTIS CANCER
     Dosage: UNK
  3. BLEOMYCIN [Suspect]
     Indication: TESTIS CANCER
     Dosage: UNK

REACTIONS (2)
  - CAROTID ARTERY THROMBOSIS [None]
  - PULMONARY EMBOLISM [None]
